FAERS Safety Report 10240019 (Version 1)
Quarter: 2014Q2

REPORT INFORMATION
  Report Type: Report from Study
  Country: US (occurrence: US)
  Receive Date: 20140616
  Receipt Date: 20140616
  Transmission Date: 20141212
  Serious: Yes (Hospitalization, Other)
  Sender: FDA-Public Use
  Company Number: US-ABBVIE-14P-163-1245220-00

PATIENT
  Age: 56 Year
  Sex: Female
  Weight: 97.61 kg

DRUGS (1)
  1. HUMIRA [Suspect]
     Indication: CROHN^S DISEASE
     Dates: start: 20130508

REACTIONS (7)
  - Anaemia [Unknown]
  - Abdominal pain [Recovering/Resolving]
  - Crohn^s disease [Recovering/Resolving]
  - Blood potassium decreased [Unknown]
  - Abdominal pain [Recovering/Resolving]
  - Diarrhoea [Recovering/Resolving]
  - Nausea [Recovering/Resolving]
